FAERS Safety Report 9500074 (Version 1)
Quarter: 2013Q3

REPORT INFORMATION
  Report Type: Spontaneous
  Country: US (occurrence: None)
  Receive Date: 20130904
  Receipt Date: 20130904
  Transmission Date: 20140515
  Serious: Yes (Hospitalization, Disabling)
  Sender: FDA-Public Use
  Company Number: None

PATIENT
  Age: 54 Year
  Sex: Female

DRUGS (1)
  1. AVELOX [Suspect]
     Indication: PNEUMONIA

REACTIONS (6)
  - Dehydration [None]
  - Vomiting [None]
  - Diarrhoea [None]
  - Arthralgia [None]
  - Myalgia [None]
  - Bedridden [None]
